FAERS Safety Report 8291137-8 (Version None)
Quarter: 2012Q2

REPORT INFORMATION
  Report Type: 
  Country: None (occurrence: None)
  Receive Date: 20120417
  Receipt Date: 20110616
  Transmission Date: 20120825
  Serious: No
  Sender: FDA-Public Use
  Company Number: US-ASTRAZENECA-2011SE37126

PATIENT
  Age: 54 Year
  Sex: Female
  Weight: 89.8 kg

DRUGS (3)
  1. LEXAPRO [Concomitant]
  2. NEXIUM [Suspect]
     Indication: GASTROOESOPHAGEAL REFLUX DISEASE
     Route: 048
     Dates: start: 20110101, end: 20110601
  3. TEKURANA [Concomitant]

REACTIONS (5)
  - DRY MOUTH [None]
  - PAIN IN EXTREMITY [None]
  - ARTHRALGIA [None]
  - NECK PAIN [None]
  - BONE PAIN [None]
